FAERS Safety Report 9536752 (Version 1)
Quarter: 2013Q3

REPORT INFORMATION
  Report Type: Spontaneous
  Country: US (occurrence: US)
  Receive Date: 20130919
  Receipt Date: 20130919
  Transmission Date: 20140515
  Serious: Yes (Hospitalization)
  Sender: FDA-Public Use
  Company Number: US-SANOFI-AVENTIS-2013SA091558

PATIENT
  Age: 59 Year
  Sex: Female

DRUGS (2)
  1. LANTUS SOLOSTAR [Suspect]
     Indication: TYPE 1 DIABETES MELLITUS
     Dosage: START DATE: 5 YEAR DOSE:100 UNIT(S)
     Route: 065
  2. SOLOSTAR [Concomitant]

REACTIONS (3)
  - Cardiomyopathy [Unknown]
  - Adverse event [Unknown]
  - Malaise [Unknown]
